FAERS Safety Report 9351247 (Version 1)
Quarter: 2013Q2

REPORT INFORMATION
  Report Type: Spontaneous
  Country: US (occurrence: US)
  Receive Date: 20130617
  Receipt Date: 20130617
  Transmission Date: 20140414
  Serious: Yes (Hospitalization, Other)
  Sender: FDA-Public Use
  Company Number: US-TEVA-411746USA

PATIENT
  Age: 58 Year
  Sex: Female

DRUGS (4)
  1. MERCAPTOPURINE [Suspect]
     Indication: COLITIS MICROSCOPIC
     Dosage: DAILY
     Route: 065
  2. COTRIMOXAZOLE [Concomitant]
     Indication: AEROMONA INFECTION
     Route: 065
  3. OCTREOTIDE [Concomitant]
     Indication: COLITIS MICROSCOPIC
     Route: 058
  4. PREDNISONE [Concomitant]
     Indication: COLITIS MICROSCOPIC
     Route: 065

REACTIONS (1)
  - Pancreatitis acute [Unknown]
